FAERS Safety Report 7397313-0 (Version None)
Quarter: 2011Q2

REPORT INFORMATION
  Report Type: 
  Country: None (occurrence: None)
  Receive Date: 20110406
  Receipt Date: 20110405
  Transmission Date: 20111010
  Serious: Yes (Hospitalization)
  Sender: FDA-Public Use
  Company Number: JP-PFIZER INC-2011074649

PATIENT
  Sex: Female

DRUGS (1)
  1. SELARA [Suspect]
     Indication: NEPHRITIS
     Route: 048

REACTIONS (1)
  - CHOLECYSTITIS [None]
